FAERS Safety Report 10761691 (Version 1)
Quarter: 2015Q1

REPORT INFORMATION
  Report Type: Report from Study
  Country: MX (occurrence: MX)
  Receive Date: 20150204
  Receipt Date: 20150204
  Transmission Date: 20150721
  Serious: Yes (Other)
  Sender: FDA-Public Use
  Company Number: MX-UCBSA-2015002260

PATIENT
  Age: 16 Year
  Sex: Female
  Weight: 39.6 kg

DRUGS (6)
  1. CERTOLIZUMAB PEGOL JIA [Suspect]
     Active Substance: CERTOLIZUMAB PEGOL
     Indication: JUVENILE IDIOPATHIC ARTHRITIS
     Dosage: 100 MG,  NO OF DOSE RECEIVED 3
     Route: 058
     Dates: start: 20141124, end: 20150119
  2. DICLOFENAC [Concomitant]
     Active Substance: DICLOFENAC
     Indication: JUVENILE IDIOPATHIC ARTHRITIS
     Dosage: 50 MG, 2X/DAY (BID)
     Route: 048
     Dates: start: 20140219
  3. FOLIC ACID. [Concomitant]
     Active Substance: FOLIC ACID
     Indication: JUVENILE IDIOPATHIC ARTHRITIS
     Dosage: 5 MG, ONCE DAILY (QD)
     Route: 048
     Dates: start: 201312
  4. PREDNISONA [Concomitant]
     Active Substance: PREDNISONE
     Indication: JUVENILE IDIOPATHIC ARTHRITIS
     Dosage: 7.5 MG, ONCE DAILY (QD)
     Route: 048
     Dates: start: 20140219
  5. METHOTREXATE [Concomitant]
     Active Substance: METHOTREXATE
     Indication: JUVENILE IDIOPATHIC ARTHRITIS
     Dosage: 17.5 MG, ONCE DAILY (QD)
     Route: 048
     Dates: start: 20140219
  6. OMEPRAZOLE. [Concomitant]
     Active Substance: OMEPRAZOLE
     Indication: DYSPEPSIA
     Dosage: 20 MG, 2X/DAY (BID)
     Route: 048
     Dates: start: 20140219

REACTIONS (1)
  - Pneumonia [Recovered/Resolved]

NARRATIVE: CASE EVENT DATE: 20141225
